FAERS Safety Report 4366634-8 (Version None)
Quarter: 2004Q2

REPORT INFORMATION
  Report Type: 
  Country: None (occurrence: None)
  Receive Date: 20040527
  Receipt Date: 20021129
  Transmission Date: 20050107
  Serious: Yes (Other)
  Sender: FDA-Public Use
  Company Number: 12130647

PATIENT
  Age: 24 Year
  Sex: Male

DRUGS (10)
  1. EFAVIRENZ CAPS 200 MG [Suspect]
     Indication: HIV INFECTION
     Dosage: DOSE REDUCED TO 400 MG DAILY, THEN PERMANENTLY DISCONTINUED ON 05-MAR-2002
     Route: 048
     Dates: start: 20020204, end: 20020305
  2. CARBAMAZEPINE [Interacting]
     Indication: EPILEPSY
     Dosage: CHANGED TO 220 MG ON 25-FEB-2002 AND TO 450 MG.
     Route: 048
     Dates: start: 19890101
  3. DIDANOSINE [Concomitant]
     Dates: start: 20020204
  4. STAVUDINE [Concomitant]
  5. ZONISAMIDE [Concomitant]
     Dates: start: 19890101
  6. LAMIVUDINE [Concomitant]
     Indication: HIV INFECTION
     Dates: start: 19981001, end: 20020203
  7. NELFINAVIR MESYLATE [Concomitant]
     Indication: HIV INFECTION
     Dates: start: 19981001, end: 20020203
  8. SAQUINAVIR [Concomitant]
     Indication: HIV INFECTION
     Dates: start: 19981001, end: 20020203
  9. LOPERAMIDE HCL [Concomitant]
     Dates: start: 20010401
  10. NONACOG ALFA [Concomitant]
     Dates: start: 20010401

REACTIONS (5)
  - DIZZINESS [None]
  - DRUG INTERACTION [None]
  - EPILEPSY [None]
  - INSOMNIA [None]
  - RASH [None]
